FAERS Safety Report 8500302 (Version 2)
Quarter: 2012Q4

REPORT INFORMATION
  Report Type: 
  Country: US (occurrence: US)
  Receive Date: 20120409
  Receipt Date: 20120913
  Transmission Date: 20130627
  Serious: Yes (Hospitalization, Disabling)
  Sender: FDA-Public Use
  Company Number: US-BAYER-2012-031112

PATIENT
  Age: 29 Year
  Sex: Female
  Weight: 54.42 kg

DRUGS (10)
  1. YAZ [Suspect]
     Indication: CONTRACEPTION
     Dosage: UNK
     Dates: start: 20070320, end: 200705
  2. YAZ [Suspect]
     Indication: PREMENSTRUAL SYNDROME
  3. YAZ [Suspect]
     Indication: PREMENSTRUAL SYNDROME
  4. YASMIN [Suspect]
     Indication: CONTRACEPTION
     Dosage: UNK
     Dates: start: 20070320, end: 200705
  5. YASMIN [Suspect]
     Indication: PREMENSTRUAL SYNDROME
  6. YASMIN [Suspect]
     Indication: PREMENSTRUAL SYNDROME
  7. VICODIN [Concomitant]
     Indication: PAIN
     Dosage: 5mg-500mg q every 6 hours prn
     Dates: start: 20070426
  8. VICODIN [Concomitant]
     Indication: PAIN
  9. IBUPROFEN [Concomitant]
     Indication: PAIN
     Dosage: 600 mg, TID prn
     Dates: start: 20070426
  10. TYLENOL [Concomitant]
     Indication: CHEST PAIN

REACTIONS (8)
  - Pulmonary embolism [Recovered/Resolved]
  - Deep vein thrombosis [Recovered/Resolved]
  - Pain [Recovered/Resolved]
  - Injury [None]
  - Deformity [None]
  - Anxiety [None]
  - Emotional distress [None]
  - Anhedonia [None]
